FAERS Safety Report 8615947-X (Version None)
Quarter: 2012Q3

REPORT INFORMATION
  Report Type: 
  Country: None (occurrence: None)
  Receive Date: 20120823
  Receipt Date: 20120813
  Transmission Date: 20120928
  Serious: Yes (Death, Other)
  Sender: FDA-Public Use
  Company Number: DE-GLAXOSMITHKLINE-D0076708A

PATIENT
  Sex: Female

DRUGS (1)
  1. ARIXTRA [Suspect]
     Indication: ANTIPHOSPHOLIPID SYNDROME
     Route: 064

REACTIONS (5)
  - DYSMORPHISM [None]
  - HYPERTELORISM OF ORBIT [None]
  - FOETAL EXPOSURE DURING PREGNANCY [None]
  - SCOLIOSIS [None]
  - GASTROSCHISIS [None]
